FAERS Safety Report 5075334-0 (Version None)
Quarter: 2006Q3

REPORT INFORMATION
  Report Type: 
  Country: None (occurrence: None)
  Receive Date: 20060804
  Receipt Date: 20060724
  Transmission Date: 20061208
  Serious: Yes (Other)
  Sender: FDA-Public Use
  Company Number: 2006091524

PATIENT
  Age: 15 Year
  Sex: Male

DRUGS (8)
  1. ZITHROMAX [Suspect]
     Indication: STAPHYLOCOCCAL INFECTION
     Dosage: 250 MG, ORAL
     Route: 048
  2. LEVOFLOXACIN [Suspect]
     Indication: DRUG USE FOR UNKNOWN INDICATION
  3. TABALON (IBUPROFEN) [Concomitant]
  4. PULMICORT [Concomitant]
  5. OMEPRAZOLE [Concomitant]
  6. MAGNESIUM [Concomitant]
  7. DECORTIN (PREDNISONE) [Concomitant]
  8. TOBI [Concomitant]

REACTIONS (2)
  - EXTRAPYRAMIDAL DISORDER [None]
  - NERVOUS SYSTEM DISORDER [None]
